FAERS Safety Report 8326153-0 (Version None)
Quarter: 2012Q2

REPORT INFORMATION
  Report Type: 
  Country: None (occurrence: None)
  Receive Date: 20120501
  Receipt Date: 20120425
  Transmission Date: 20120825
  Serious: Yes (Life-Threatening, Hospitalization)
  Sender: FDA-Public Use
  Company Number: ES-FRI-1000029997

PATIENT
  Age: 86 Year
  Sex: Male

DRUGS (2)
  1. ROFLUMILAST [Suspect]
     Dosage: 250 MG
     Route: 048
     Dates: end: 20120403
  2. ROFLUMILAST [Suspect]
     Indication: CHRONIC OBSTRUCTIVE PULMONARY DISEASE
     Dosage: 500 MCG
     Route: 048
     Dates: start: 20111001

REACTIONS (4)
  - RENAL FAILURE [None]
  - WEIGHT DECREASED [None]
  - DEHYDRATION [None]
  - DIARRHOEA [None]
